FAERS Safety Report 5277035-2 (Version None)
Quarter: 2007Q1

REPORT INFORMATION
  Report Type: 
  Country: None (occurrence: None)
  Receive Date: 20070327
  Receipt Date: 20070212
  Transmission Date: 20070707
  Serious: No
  Sender: FDA-Public Use
  Company Number: VI-BRISTOL-MYERS SQUIBB COMPANY-13675822

PATIENT
  Sex: Female

DRUGS (7)
  1. ORENCIA [Suspect]
     Indication: RHEUMATOID ARTHRITIS
     Route: 042
  2. PREDNISONE [Concomitant]
  3. VERAPAMIL [Concomitant]
  4. ZELNORM [Concomitant]
  5. ALLEGRA [Concomitant]
  6. DARVOCET [Concomitant]
  7. VITAMIN B-12 [Concomitant]

REACTIONS (2)
  - PRURITUS [None]
  - RASH [None]
